FAERS Safety Report 19924305 (Version 2)
Quarter: 2021Q4

REPORT INFORMATION
  Report Type: Other
  Country: CA (occurrence: None)
  Receive Date: 20211006
  Receipt Date: 20211210
  Transmission Date: 20220303
  Serious: No
  Sender: FDA-Public Use
  Company Number: CA-ROCHE-2927957

PATIENT
  Age: 52 Year
  Sex: Female

DRUGS (4)
  1. OCREVUS [Suspect]
     Active Substance: OCRELIZUMAB
     Indication: Relapsing-remitting multiple sclerosis
     Dosage: 300 MG AT DAY 0 AND 14, THEN 600 MG EVERY 6 MONTH
     Route: 042
     Dates: start: 20181115
  2. CANDESARTAN [Concomitant]
     Active Substance: CANDESARTAN
  3. BISOPROLOL [Concomitant]
     Active Substance: BISOPROLOL
  4. PFIZER-BIONTECH COVID-19 VACCINE [Concomitant]
     Active Substance: TOZINAMERAN
     Dosage: 1ST DOSE- 03/MAY?2ND DOSE- 10/JUL

REACTIONS (2)
  - SARS-CoV-2 test positive [Recovered/Resolved]
  - Chest pain [Recovered/Resolved]

NARRATIVE: CASE EVENT DATE: 20210924
